FAERS Safety Report 6109227-4 (Version None)
Quarter: 2009Q1

REPORT INFORMATION
  Report Type: 
  Country: None (occurrence: None)
  Receive Date: 20090306
  Receipt Date: 20090226
  Transmission Date: 20090719
  Serious: Yes (Other)
  Sender: FDA-Public Use
  Company Number: FABR-1000550

PATIENT
  Age: 63 Year
  Sex: Male
  Weight: 80 kg

DRUGS (6)
  1. FABRAZYME [Suspect]
     Indication: FABRY'S DISEASE
     Dosage: 70 M G, Q2W, INTRAVENOUS
     Route: 042
     Dates: start: 20070618
  2. RAMIPRIL [Concomitant]
  3. BISOPROLOL FUMARATE [Concomitant]
  4. IRBESARTAN [Concomitant]
  5. ACETYLSALICYLIC ACID SRT [Concomitant]
  6. BISOBETA (BISOPROLOL FUMARATE) [Concomitant]

REACTIONS (7)
  - BLADDER CANCER [None]
  - BLOOD URINE PRESENT [None]
  - FATIGUE [None]
  - HAEMOGLOBINURIA [None]
  - HAEMOLYSIS [None]
  - PRODUCT QUALITY ISSUE [None]
  - URINE COLOUR ABNORMAL [None]
